FAERS Safety Report 23378163 (Version 1)
Quarter: 2024Q1

REPORT INFORMATION
  Report Type: Report from Study
  Country: US (occurrence: US)
  Receive Date: 20240108
  Receipt Date: 20240108
  Transmission Date: 20240410
  Serious: No
  Sender: FDA-Public Use
  Company Number: US-OPELLA-2024OHG000357

PATIENT
  Sex: Male

DRUGS (1)
  1. ICY HOT PRO PAIN RELIEF [Suspect]
     Active Substance: CAMPHOR (SYNTHETIC)\MENTHOL
     Indication: Product used for unknown indication
     Route: 065

REACTIONS (2)
  - Burning sensation [Unknown]
  - Product odour abnormal [Unknown]
